FAERS Safety Report 9414932 (Version 2)
Quarter: 2013Q3

REPORT INFORMATION
  Report Type: Spontaneous
  Country: US (occurrence: US)
  Receive Date: 20130723
  Receipt Date: 20130805
  Transmission Date: 20140515
  Serious: Yes (Hospitalization)
  Sender: FDA-Public Use
  Company Number: US-GILEAD-2013-0078930

PATIENT
  Sex: Female

DRUGS (10)
  1. LETAIRIS [Suspect]
     Indication: PULMONARY HYPERTENSION
     Dosage: 10 MG, QD
     Route: 048
     Dates: start: 20100908
  2. LETAIRIS [Suspect]
     Indication: CORONARY ARTERY DISEASE
  3. ADCIRCA [Concomitant]
  4. EPOPROSTENOL [Concomitant]
  5. OXYGEN [Concomitant]
  6. COUMADIN                           /00014802/ [Concomitant]
  7. IRON [Concomitant]
  8. ZANTAC [Concomitant]
  9. LOPRESSOR [Concomitant]
  10. NACL [Concomitant]

REACTIONS (3)
  - Sepsis [Unknown]
  - Staphylococcal bacteraemia [Unknown]
  - Device failure [Unknown]
